FAERS Safety Report 6161563-1 (Version None)
Quarter: 2009Q2

REPORT INFORMATION
  Report Type: 
  Country: None (occurrence: None)
  Receive Date: 20090415
  Receipt Date: 20090415
  Transmission Date: 20091009
  Serious: No
  Sender: FDA-Public Use
  Company Number: None

PATIENT
  Sex: Female

DRUGS (1)
  1. KEPPRA [Suspect]
     Dosage: 300MG BID

REACTIONS (2)
  - ANTICONVULSANT DRUG LEVEL ABNORMAL [None]
  - CONVULSION [None]
